FAERS Safety Report 21114879 (Version 1)
Quarter: 2022Q3

REPORT INFORMATION
  Report Type: Spontaneous
  Country: US (occurrence: US)
  Receive Date: 20220721
  Receipt Date: 20220721
  Transmission Date: 20221027
  Serious: No
  Sender: FDA-Public Use
  Company Number: US-PERRIGO-22US002953

PATIENT
  Age: 61 Year
  Sex: Male
  Weight: 71.655 kg

DRUGS (4)
  1. MINOXIDIL [Suspect]
     Active Substance: MINOXIDIL
     Indication: Alopecia
     Dosage: 1 ML, BID
     Route: 061
     Dates: start: 20220105, end: 20220207
  2. MINOXIDIL [Suspect]
     Active Substance: MINOXIDIL
     Dosage: 1 ML, QD
     Route: 061
     Dates: start: 20211228, end: 20220104
  3. MINOXIDIL [Suspect]
     Active Substance: MINOXIDIL
     Dosage: 0.25 ML, QD
     Route: 061
     Dates: start: 20220214, end: 20220217
  4. FINASTERIDE [Concomitant]
     Active Substance: FINASTERIDE
     Indication: Alopecia
     Dosage: UNKNOWN, UNKNOWN
     Route: 065
     Dates: start: 20211228, end: 20220217

REACTIONS (7)
  - Pruritus [Recovering/Resolving]
  - Thermal burn [Recovered/Resolved]
  - Skin fissures [Recovered/Resolved]
  - Headache [Not Recovered/Not Resolved]
  - Application site pruritus [Recovering/Resolving]
  - Underdose [Recovered/Resolved]
  - Inappropriate schedule of product administration [Recovered/Resolved]

NARRATIVE: CASE EVENT DATE: 20211228
